FAERS Safety Report 5945697-X (Version None)
Quarter: 2008Q4

REPORT INFORMATION
  Report Type: 
  Country: None (occurrence: None)
  Receive Date: 20081104
  Receipt Date: 20081023
  Transmission Date: 20090506
  Serious: Yes (Life-Threatening, Hospitalization)
  Sender: FDA-Public Use
  Company Number: A-JP2006-13277

PATIENT
  Age: 23 Year
  Sex: Male
  Weight: 55 kg

DRUGS (13)
  1. TRACLEER [Suspect]
     Indication: PULMONARY ARTERIAL HYPERTENSION
     Dosage: SEE IMAGE
     Route: 048
     Dates: start: 20060606, end: 20060608
  2. TRACLEER [Suspect]
     Indication: PULMONARY ARTERIAL HYPERTENSION
     Dosage: SEE IMAGE
     Route: 048
     Dates: start: 20060609, end: 20060611
  3. TRACLEER [Suspect]
     Indication: PULMONARY ARTERIAL HYPERTENSION
     Dosage: SEE IMAGE
     Route: 048
     Dates: start: 20060612, end: 20060612
  4. TRACLEER [Suspect]
     Indication: PULMONARY ARTERIAL HYPERTENSION
     Dosage: SEE IMAGE
     Route: 048
     Dates: start: 20060613
  5. EPOPROSTENOL SODIUM [Suspect]
  6. TRICHLORMETHIAZIDE [Concomitant]
  7. OXYGEN (OXYGEN) [Concomitant]
  8. TRIAZOLAM [Concomitant]
  9. POTASSIUM CHLORIDE [Concomitant]
  10. ASPARTRATE POTASSIUM (ASPARTATE POTASSIUM) [Concomitant]
  11. SPIRONOLACTONE [Concomitant]
  12. BIFIDOBACTERIUM BIFIDUM (BIFIDOBACTERIUM BIFIDUM) [Concomitant]
  13. FUROSEMIDE [Concomitant]

REACTIONS (13)
  - APPARENT LIFE THREATENING EVENT [None]
  - CONDITION AGGRAVATED [None]
  - DRUG INTERACTION [None]
  - DYSPNOEA EXERTIONAL [None]
  - HAEMOPTYSIS [None]
  - HEADACHE [None]
  - HOT FLUSH [None]
  - HYPERTHYROIDISM [None]
  - PLATELET COUNT DECREASED [None]
  - PNEUMONIA [None]
  - PULMONARY HAEMORRHAGE [None]
  - RIGHT VENTRICULAR FAILURE [None]
  - WHITE BLOOD CELL COUNT INCREASED [None]
